FAERS Safety Report 18404436 (Version 1)
Quarter: 2020Q4

REPORT INFORMATION
  Report Type: Spontaneous
  Country: US (occurrence: US)
  Receive Date: 20201020
  Receipt Date: 20201020
  Transmission Date: 20210114
  Serious: Yes (Hospitalization)
  Sender: FDA-Public Use
  Company Number: US-EMD SERONO-7012013

PATIENT
  Age: 67 Year
  Sex: Female

DRUGS (3)
  1. KEPPRA [Concomitant]
     Active Substance: LEVETIRACETAM
     Indication: SEIZURE
  2. COUMADIN [Concomitant]
     Active Substance: WARFARIN SODIUM
     Indication: DEEP VEIN THROMBOSIS
  3. REBIF [Suspect]
     Active Substance: INTERFERON BETA-1A
     Indication: MULTIPLE SCLEROSIS
     Dosage: REBIF PREFILLED SYRINGE
     Route: 058
     Dates: start: 20020701

REACTIONS (15)
  - Lack of injection site rotation [Unknown]
  - Post procedural complication [Unknown]
  - Pneumonia [Unknown]
  - Injection site bruising [Not Recovered/Not Resolved]
  - Blood sodium decreased [Unknown]
  - Coma [Recovered/Resolved]
  - Fall [Unknown]
  - Spinal column injury [Unknown]
  - Intervertebral disc protrusion [Unknown]
  - Upper limb fracture [Unknown]
  - Muscular weakness [Unknown]
  - Thrombosis [Unknown]
  - Balance disorder [Unknown]
  - Seizure [Unknown]
  - Arthralgia [Unknown]

NARRATIVE: CASE EVENT DATE: 201006
